FAERS Safety Report 9176787 (Version 2)
Quarter: 2013Q2

REPORT INFORMATION
  Report Type: Spontaneous
  Country: BR (occurrence: BR)
  Receive Date: 20130321
  Receipt Date: 20130401
  Transmission Date: 20140414
  Serious: Yes (Death)
  Sender: FDA-Public Use
  Company Number: BR-PFIZER INC-2013091420

PATIENT
  Sex: Female

DRUGS (1)
  1. CAMPTOSAR [Suspect]
     Indication: HEAD AND NECK CANCER
     Dosage: THIRD CYCLE

REACTIONS (2)
  - Disease progression [Fatal]
  - Head and neck cancer [Fatal]
